FAERS Safety Report 8531884-3 (Version None)
Quarter: 2012Q3

REPORT INFORMATION
  Report Type: 
  Country: None (occurrence: None)
  Receive Date: 20120723
  Receipt Date: 20120710
  Transmission Date: 20120928
  Serious: No
  Sender: FDA-Public Use
  Company Number: US-ASTRAZENECA-2012SE47228

PATIENT
  Sex: Female

DRUGS (4)
  1. RANITIDINE [Concomitant]
  2. NEXIUM [Suspect]
     Indication: GASTROOESOPHAGEAL REFLUX DISEASE
     Route: 048
  3. NEXIUM [Suspect]
     Route: 048
     Dates: start: 20020101, end: 20120101
  4. OMEPRAZOLE [Suspect]
     Indication: GASTROOESOPHAGEAL REFLUX DISEASE
     Route: 048
     Dates: start: 20120101

REACTIONS (4)
  - INCORRECT STORAGE OF DRUG [None]
  - GASTROOESOPHAGEAL REFLUX DISEASE [None]
  - REGURGITATION [None]
  - HICCUPS [None]
